FAERS Safety Report 6794831-0 (Version None)
Quarter: 2010Q2

REPORT INFORMATION
  Report Type: 
  Country: None (occurrence: None)
  Receive Date: 20100625
  Receipt Date: 20100614
  Transmission Date: 20101027
  Serious: Yes (Hospitalization)
  Sender: FDA-Public Use
  Company Number: FR-SANOFI-AVENTIS-2010SA034368

PATIENT
  Age: 34 Year
  Sex: Female

DRUGS (22)
  1. LOVENOX [Suspect]
     Route: 058
     Dates: start: 20100516, end: 20100518
  2. PROPOFOL [Suspect]
     Route: 042
     Dates: start: 20100517, end: 20100517
  3. ATRACURIUM [Suspect]
     Route: 042
     Dates: start: 20100517, end: 20100517
  4. SUFENTA PRESERVATIVE FREE [Suspect]
     Route: 042
     Dates: start: 20100517, end: 20100517
  5. NEURONTIN [Suspect]
     Route: 048
     Dates: start: 20100516, end: 20100516
  6. NEURONTIN [Suspect]
     Dosage: 600 MG 2 HOURS BEFORE SURGERY
     Route: 048
     Dates: start: 20100517, end: 20100517
  7. NEURONTIN [Suspect]
     Route: 048
     Dates: start: 20100518, end: 20100518
  8. NORMACOL [Suspect]
     Route: 054
     Dates: start: 20100516
  9. DEXAMETHASONE ACETATE [Suspect]
     Route: 042
     Dates: start: 20100517, end: 20100517
  10. EPHEDRINE [Suspect]
     Route: 042
     Dates: start: 20100517, end: 20100517
  11. BETADINE [Suspect]
     Route: 003
     Dates: start: 20100517, end: 20100517
  12. NAROPIN [Suspect]
     Route: 050
     Dates: start: 20100517, end: 20100517
  13. DROPERIDOL [Suspect]
     Route: 042
     Dates: start: 20100517, end: 20100519
  14. KETAMINE HCL [Suspect]
     Route: 042
     Dates: start: 20100517, end: 20100517
  15. AUGMENTIN '125' [Suspect]
     Route: 042
     Dates: start: 20100517, end: 20100517
  16. SEVORANE [Suspect]
     Route: 055
     Dates: start: 20100517, end: 20100517
  17. NITROUS OXIDE [Suspect]
     Route: 055
     Dates: start: 20100517, end: 20100517
  18. PERFALGAN [Concomitant]
     Route: 042
     Dates: start: 20100517, end: 20100523
  19. RINGER [Concomitant]
     Route: 042
     Dates: start: 20100517, end: 20100517
  20. ESOMEPRAZOLE [Concomitant]
     Route: 048
     Dates: start: 20100517
  21. ZOPHREN [Concomitant]
     Route: 065
     Dates: start: 20100518
  22. ACUPAN [Concomitant]
     Route: 065

REACTIONS (4)
  - HAEMATURIA [None]
  - LYMPHOPENIA [None]
  - OLIGURIA [None]
  - RENAL FAILURE ACUTE [None]
